FAERS Safety Report 9052517 (Version 1)
Quarter: 2013Q1

REPORT INFORMATION
  Report Type: Spontaneous
  Country: PH (occurrence: PH)
  Receive Date: 20130207
  Receipt Date: 20130207
  Transmission Date: 20140127
  Serious: Yes (Death, Other)
  Sender: FDA-Public Use
  Company Number: PHHY2012PH115242

PATIENT
  Age: 30 None
  Sex: Male

DRUGS (5)
  1. IMATINIB [Suspect]
     Indication: CHRONIC MYELOID LEUKAEMIA
     Dosage: 4 DF, QD
     Route: 048
     Dates: start: 20100108
  2. CIPROFLOXACIN [Concomitant]
     Indication: INFECTION
     Dosage: 500 MG, BID
     Route: 048
     Dates: start: 20120909, end: 20120928
  3. CLINDAMYCIN [Concomitant]
     Indication: INFECTION
     Dosage: 300 MG
     Route: 048
     Dates: start: 20120928, end: 20121005
  4. ALLOPURINOL [Concomitant]
     Indication: TUMOUR LYSIS SYNDROME
     Dosage: 100 MG, QD
     Route: 048
     Dates: start: 20121005, end: 20130105
  5. SODIUM BICARBONATE [Concomitant]
     Indication: TUMOUR LYSIS SYNDROME
     Dosage: UNK UKN, TID
     Route: 048
     Dates: start: 20121005, end: 20130105

REACTIONS (4)
  - Haemorrhage intracranial [Fatal]
  - Lymphadenopathy [Fatal]
  - Chronic myeloid leukaemia [Unknown]
  - White blood cell count increased [Recovered/Resolved with Sequelae]
